FAERS Safety Report 4489558-4 (Version None)
Quarter: 2004Q4

REPORT INFORMATION
  Report Type: 
  Country: None (occurrence: None)
  Receive Date: 20041026
  Receipt Date: 20041013
  Transmission Date: 20050328
  Serious: Yes (Hospitalization)
  Sender: FDA-Public Use
  Company Number: 2004238844DE

PATIENT
  Age: 30 Year

DRUGS (5)
  1. CELEBREX [Suspect]
     Dosage: 200 MG, QD, ORAL
     Route: 048
  2. AZATHIOPRINE [Suspect]
     Indication: VASCULITIS
     Dosage: 100 MG, QD
  3. HYDROXYCHLOROQUINE (HYDROXYCHLORIOQUINE) [Concomitant]
  4. PREDNISONE [Concomitant]
  5. FOSINOPRIL SODIUM [Concomitant]

REACTIONS (8)
  - COMA [None]
  - DIALYSIS [None]
  - DRUG INTERACTION [None]
  - GENERAL PHYSICAL HEALTH DETERIORATION [None]
  - HEPATIC ENCEPHALOPATHY [None]
  - HEPATIC FAILURE [None]
  - MALAISE [None]
  - RENAL IMPAIRMENT [None]
